FAERS Safety Report 8211165-8 (Version None)
Quarter: 2012Q1

REPORT INFORMATION
  Report Type: 
  Country: None (occurrence: None)
  Receive Date: 20120315
  Receipt Date: 20120303
  Transmission Date: 20120608
  Serious: No
  Sender: FDA-Public Use
  Company Number: US-JNJFOC-20110710593

PATIENT
  Age: 6 Decade
  Sex: Male

DRUGS (5)
  1. FENTANYL-100 [Suspect]
     Indication: PAIN
     Dosage: NDC UNKNOWN
     Route: 062
     Dates: start: 20110626, end: 20110720
  2. DURAGESIC-100 [Suspect]
     Indication: PAIN
     Dosage: (NDC#50458-094-55)
     Route: 062
     Dates: start: 20110720
  3. SANDOZ GENERIC FENTANYL PATCHES [Suspect]
     Indication: PRODUCT USED FOR UNKNOWN INDICATION
     Route: 062
  4. DURAGESIC-100 [Suspect]
     Indication: PRODUCT USED FOR UNKNOWN INDICATION
     Route: 062
     Dates: start: 20120302
  5. DURAGESIC-100 [Suspect]
     Route: 062

REACTIONS (6)
  - DRUG EFFECT DECREASED [None]
  - INCORRECT DOSE ADMINISTERED [None]
  - BREAKTHROUGH PAIN [None]
  - PRODUCT QUALITY ISSUE [None]
  - DRUG INEFFECTIVE [None]
  - WRONG TECHNIQUE IN DRUG USAGE PROCESS [None]
